FAERS Safety Report 10266970 (Version 1)
Quarter: 2014Q2

REPORT INFORMATION
  Report Type: Report from Study
  Country: US (occurrence: US)
  Receive Date: 20140630
  Receipt Date: 20140630
  Transmission Date: 20141212
  Serious: Yes (Hospitalization)
  Sender: FDA-Public Use
  Company Number: US-BIOGENIDEC-2014BI060991

PATIENT
  Age: 52 Year
  Sex: Female
  Weight: 109 kg

DRUGS (10)
  1. AVONEX [Suspect]
     Indication: MULTIPLE SCLEROSIS
     Route: 030
     Dates: start: 20120801
  2. AVONEX [Suspect]
     Indication: MULTIPLE SCLEROSIS
     Route: 030
     Dates: start: 20130308, end: 20140509
  3. CYMBALTA [Concomitant]
     Route: 048
     Dates: start: 20120101
  4. TRICOR [Concomitant]
     Route: 048
  5. AMPYRA [Concomitant]
     Route: 048
     Dates: start: 20131011
  6. BACLOFEN [Concomitant]
     Indication: MUSCLE SPASMS
     Route: 048
     Dates: start: 20131011
  7. SPIRIVA [Concomitant]
     Route: 055
  8. SYMBICORT [Concomitant]
     Route: 055
     Dates: start: 200905
  9. VITAMIN D [Concomitant]
  10. PROVIGIL [Concomitant]

REACTIONS (1)
  - Chronic obstructive pulmonary disease [Unknown]
